FAERS Safety Report 5977979-X (Version None)
Quarter: 2008Q4

REPORT INFORMATION
  Report Type: 
  Country: None (occurrence: None)
  Receive Date: 20081203
  Receipt Date: 20081111
  Transmission Date: 20090506
  Serious: No
  Sender: FDA-Public Use
  Company Number: US-B.I. PHARMACEUTICALS,INC./RIDGEFIELD-2008-BP-16079BP

PATIENT
  Sex: Female

DRUGS (4)
  1. COMBIVENT [Suspect]
  2. FLOVENT [Concomitant]
     Dates: start: 20051214
  3. VENTOLIN [Concomitant]
     Dates: start: 20070607
  4. DUONEB [Concomitant]
     Dates: start: 20070723

REACTIONS (2)
  - ASTHMA [None]
  - CHEST DISCOMFORT [None]
